FAERS Safety Report 8848600 (Version 1)
Quarter: 2012Q4

REPORT INFORMATION
  Report Type: 
  Country: JP (occurrence: JP)
  Receive Date: 20121018
  Receipt Date: 20121018
  Transmission Date: 20130627
  Serious: Yes (Other)
  Sender: FDA-Public Use
  Company Number: JP-ASTRAZENECA-2012SE78573

PATIENT

DRUGS (1)
  1. SYMBICORT TURBUHALER [Suspect]
     Dosage: ON UNKNOWN FREQUENCY
     Route: 055

REACTIONS (5)
  - Hypokalaemia [Unknown]
  - Pneumonia [Unknown]
  - Hyperaldosteronism [Unknown]
  - Decreased appetite [Unknown]
  - Insomnia [Unknown]
